FAERS Safety Report 12431551 (Version 1)
Quarter: 2016Q2

REPORT INFORMATION
  Report Type: Spontaneous
  Country: US (occurrence: None)
  Receive Date: 20160602
  Receipt Date: 20160602
  Transmission Date: 20160815
  Serious: No
  Sender: FDA-Public Use
  Company Number: None

PATIENT
  Age: 52 Year
  Sex: Female
  Weight: 89.81 kg

DRUGS (1)
  1. EOS LIP BALM SUNSCREEN BROAD SPECTRUM SPF 15 [Suspect]
     Active Substance: AVOBENZONE\HOMOSALATE\OCTOCRYLENE
     Indication: DRY SKIN PROPHYLAXIS
     Dosage: FOUR TIMES A DAY  APPLIED TO A SURFACE, USUALLY THE SKIN
     Dates: start: 20160514, end: 20160531

REACTIONS (6)
  - Cheilitis [None]
  - Chapped lips [None]
  - Oral discomfort [None]
  - Lip exfoliation [None]
  - Application site reaction [None]
  - Lip swelling [None]

NARRATIVE: CASE EVENT DATE: 20160528
